FAERS Safety Report 8379110-2 (Version None)
Quarter: 2012Q2

REPORT INFORMATION
  Report Type: 
  Country: None (occurrence: None)
  Receive Date: 20120522
  Receipt Date: 20120522
  Transmission Date: 20120825
  Serious: Yes (Hospitalization)
  Sender: FDA-Public Use
  Company Number: None

PATIENT
  Sex: Male
  Weight: 65.45 kg

DRUGS (2)
  1. PACLITAXEL [Suspect]
     Dosage: 94 MG
     Dates: end: 20120514
  2. CISPLATIN [Suspect]
     Dosage: 47 MG
     Dates: end: 20120514

REACTIONS (4)
  - ATRIAL FLUTTER [None]
  - OEDEMA PERIPHERAL [None]
  - ATRIAL FIBRILLATION [None]
  - PULMONARY EMBOLISM [None]
